FAERS Safety Report 21285562 (Version 1)
Quarter: 2022Q3

REPORT INFORMATION
  Report Type: Spontaneous
  Country: US (occurrence: None)
  Receive Date: 20220901
  Receipt Date: 20220901
  Transmission Date: 20221026
  Serious: No
  Sender: FDA-Public Use
  Company Number: None

PATIENT
  Age: 57 Year
  Sex: Male
  Weight: 116.57 kg

DRUGS (5)
  1. VRAYLAR [Suspect]
     Active Substance: CARIPRAZINE
     Indication: Schizoaffective disorder bipolar type
     Dosage: FREQUENCY : DAILY;?
     Route: 048
     Dates: start: 20220722, end: 202208
  2. TOPIRAMATE [Concomitant]
     Active Substance: TOPIRAMATE
  3. QUETIAPINE [Concomitant]
     Active Substance: QUETIAPINE
  4. DULOXETINE [Concomitant]
     Active Substance: DULOXETINE
  5. CLONAZEPAM [Concomitant]
     Active Substance: CLONAZEPAM

REACTIONS (7)
  - Anxiety [None]
  - Akathisia [None]
  - Back pain [None]
  - Headache [None]
  - Muscle spasms [None]
  - Rash [None]
  - Therapy cessation [None]

NARRATIVE: CASE EVENT DATE: 20220820
